FAERS Safety Report 9693889 (Version 2)
Quarter: 2013Q4

REPORT INFORMATION
  Report Type: Spontaneous
  Country: US (occurrence: US)
  Receive Date: 20131118
  Receipt Date: 20131218
  Transmission Date: 20140711
  Serious: Yes (Other)
  Sender: FDA-Public Use
  Company Number: US-PFIZER INC-2013328382

PATIENT
  Age: 80 Year
  Sex: Female
  Weight: 81.63 kg

DRUGS (5)
  1. LYRICA [Suspect]
     Indication: BURNING SENSATION
     Dosage: 25 MG, 2X/DAY
     Route: 048
     Dates: start: 201311, end: 2013
  2. LYRICA [Suspect]
     Indication: GAIT DISTURBANCE
  3. LYRICA [Suspect]
     Indication: PAIN IN EXTREMITY
  4. OMEPRAZOLE [Concomitant]
     Indication: GASTROOESOPHAGEAL REFLUX DISEASE
     Dosage: 40 MG, DAILY
  5. MULTIVITAMINS [Concomitant]
     Dosage: UNK

REACTIONS (11)
  - Off label use [Unknown]
  - Starvation [Unknown]
  - Hunger [Unknown]
  - Weight increased [Unknown]
  - Headache [Unknown]
  - Chromaturia [Unknown]
  - Dry eye [Recovering/Resolving]
  - Dry skin [Recovering/Resolving]
  - Pruritus [Recovering/Resolving]
  - Insomnia [Unknown]
  - Therapeutic response unexpected [Unknown]
